FAERS Safety Report 5782820-4 (Version None)
Quarter: 2008Q2

REPORT INFORMATION
  Report Type: 
  Country: None (occurrence: None)
  Receive Date: 20080619
  Receipt Date: 20080619
  Transmission Date: 20081010
  Serious: No
  Sender: FDA-Public Use
  Company Number: None

PATIENT
  Sex: Male
  Weight: 86.1834 kg

DRUGS (1)
  1. NORVASC [Suspect]
     Dosage: 10 MG. ONCE A DAY
     Dates: start: 20070101, end: 20080101

REACTIONS (2)
  - ARTHRALGIA [None]
  - JOINT SWELLING [None]
